FAERS Safety Report 4329587-4 (Version None)
Quarter: 2004Q1

REPORT INFORMATION
  Report Type: 
  Country: None (occurrence: None)
  Receive Date: 20040329
  Receipt Date: 20040218
  Transmission Date: 20041129
  Serious: No
  Sender: FDA-Public Use
  Company Number: 04P-163-0250639-00

PATIENT
  Age: 71 Year
  Sex: Female
  Weight: 100.2449 kg

DRUGS (8)
  1. HUMIRA [Suspect]
     Indication: RHEUMATOID ARTHRITIS
     Dosage: 40 MG, 1 IN 2 WK, SUBCUTANEOUS
     Route: 058
     Dates: start: 20030828, end: 20030925
  2. PREDNISONE [Concomitant]
  3. DYAZIDE [Concomitant]
  4. METHOTREXATE [Concomitant]
  5. LISINOPRIL [Concomitant]
  6. PANTOPRAZOLE [Concomitant]
  7. GLIPIZIDE [Concomitant]
  8. ROSIGLITAZONE MALEATE [Concomitant]

REACTIONS (2)
  - DRY SKIN [None]
  - RASH [None]
